FAERS Safety Report 15841115 (Version 1)
Quarter: 2019Q1

REPORT INFORMATION
  Report Type: Spontaneous
  Country: US (occurrence: US)
  Receive Date: 20190118
  Receipt Date: 20190118
  Transmission Date: 20190417
  Serious: No
  Sender: FDA-Public Use
  Company Number: US-DUSA PHARMACEUTICALS, INC.-2061430

PATIENT
  Sex: Male

DRUGS (3)
  1. LEVULAN KERASTICK [Suspect]
     Active Substance: AMINOLEVULINIC ACID HYDROCHLORIDE
     Indication: MALIGNANT MELANOMA
     Route: 061
     Dates: start: 201806
  2. RETIN-A [Concomitant]
     Active Substance: TRETINOIN
  3. BLU-U LIGHT (BLU-U BLUE LIGHT PHOTODYNAMIC THERAPY ILLUMINATOR) [Suspect]
     Active Substance: DEVICE

REACTIONS (5)
  - Contusion [Unknown]
  - Wound secretion [Unknown]
  - Facial pain [Unknown]
  - Off label use [Unknown]
  - Burning sensation [Unknown]
